FAERS Safety Report 7238901-1 (Version None)
Quarter: 2011Q1

REPORT INFORMATION
  Report Type: 
  Country: None (occurrence: None)
  Receive Date: 20110121
  Receipt Date: 20110118
  Transmission Date: 20110831
  Serious: Yes (Death)
  Sender: FDA-Public Use
  Company Number: PHHY2010DE81008

PATIENT
  Sex: Female
  Weight: 60 kg

DRUGS (4)
  1. AFINITOR [Suspect]
     Indication: RENAL CELL CARCINOMA
     Dosage: 10 MG, DAILY
     Route: 048
     Dates: start: 20100913, end: 20101104
  2. GABAPENTIN [Concomitant]
     Dosage: 10 MG, UNK
     Dates: start: 20100902, end: 20101104
  3. MORPHINE [Concomitant]
     Dosage: 60 MG, UNK
  4. CORTIDEXASON [Concomitant]
     Dosage: 8 MG, UNK
     Route: 048
     Dates: start: 20100902, end: 20100907

REACTIONS (2)
  - GENERAL PHYSICAL HEALTH DETERIORATION [None]
  - NEOPLASM MALIGNANT [None]
